FAERS Safety Report 5087017-1 (Version None)
Quarter: 2006Q3

REPORT INFORMATION
  Report Type: 
  Country: None (occurrence: None)
  Receive Date: 20060821
  Receipt Date: 20060804
  Transmission Date: 20061208
  Serious: Yes (Other)
  Sender: FDA-Public Use
  Company Number: DEP_0004_2006

PATIENT
  Age: 82 Year
  Sex: Female

DRUGS (2)
  1. METFORMIN [Suspect]
     Indication: DIABETES MELLITUS NON-INSULIN-DEPENDENT
     Dosage: 1 G BID
  2. FAMOTIDINE [Concomitant]

REACTIONS (13)
  - AMNESIA [None]
  - AREFLEXIA [None]
  - COGNITIVE DISORDER [None]
  - COORDINATION ABNORMAL [None]
  - EXTENSOR PLANTAR RESPONSE [None]
  - HAEMOGLOBIN DECREASED [None]
  - HYPOTONIA [None]
  - LOSS OF PROPRIOCEPTION [None]
  - MINI MENTAL STATUS EXAMINATION ABNORMAL [None]
  - MUSCULAR WEAKNESS [None]
  - MYELOPATHY [None]
  - SENSORY LOSS [None]
  - VITAMIN B12 DEFICIENCY [None]
